FAERS Safety Report 10228050 (Version 1)
Quarter: 2014Q2

REPORT INFORMATION
  Report Type: Spontaneous
  Country: US (occurrence: None)
  Receive Date: 20140609
  Receipt Date: 20140609
  Transmission Date: 20141212
  Serious: No
  Sender: FDA-Public Use
  Company Number: None

PATIENT
  Age: 56 Year
  Sex: Female
  Weight: 49 kg

DRUGS (1)
  1. ALENDRONATE [Suspect]
     Indication: OSTEOPOROSIS PROPHYLAXIS
     Dosage: 1, 1 PER ONE WEEK, TAKEN BY MOUTH?
     Route: 048
     Dates: start: 20130109, end: 20131101

REACTIONS (3)
  - Gingival pain [None]
  - Pain in jaw [None]
  - Glossodynia [None]
